FAERS Safety Report 8143085-1 (Version None)
Quarter: 2012Q1

REPORT INFORMATION
  Report Type: 
  Country: None (occurrence: None)
  Receive Date: 20120217
  Receipt Date: 20120209
  Transmission Date: 20120608
  Serious: No
  Sender: FDA-Public Use
  Company Number: US-BIOGENIDEC-2012BI005254

PATIENT
  Age: 64 Year
  Sex: Male

DRUGS (2)
  1. AVONEX [Suspect]
     Indication: MULTIPLE SCLEROSIS
     Route: 030
     Dates: start: 20110902
  2. IBUPROFEN (ADVIL) [Concomitant]

REACTIONS (9)
  - COORDINATION ABNORMAL [None]
  - DECREASED ACTIVITY [None]
  - ASTHENIA [None]
  - DEPRESSION [None]
  - PAIN IN EXTREMITY [None]
  - MOBILITY DECREASED [None]
  - SWELLING [None]
  - TREMOR [None]
  - OEDEMA PERIPHERAL [None]
